FAERS Safety Report 10423023 (Version 2)
Quarter: 2014Q4

REPORT INFORMATION
  Report Type: Spontaneous
  Country: US (occurrence: None)
  Receive Date: 20140722
  Receipt Date: 20141121
  Transmission Date: 20150528
  Serious: No
  Sender: FDA-Public Use
  Company Number: 163-10004-14053886

PATIENT
  Age: 35 Year
  Sex: Female

DRUGS (5)
  1. OTEZLA [Suspect]
     Active Substance: APREMILAST
     Indication: PSORIATIC ARTHROPATHY
     Route: 048
     Dates: start: 20140422
  2. HYDROXYCLOROOQUIN (HYDROXYCHLOROQUINE PHOSPHATE) [Concomitant]
  3. VITAMINS [Concomitant]
     Active Substance: VITAMINS
  4. OTEZLA [Suspect]
     Active Substance: APREMILAST
     Indication: RHEUMATOID ARTHRITIS
     Route: 048
     Dates: start: 20140422
  5. OTEZLA [Suspect]
     Active Substance: APREMILAST
     Indication: PSORIASIS
     Route: 048
     Dates: start: 20140422

REACTIONS (3)
  - Migraine [None]
  - Headache [None]
  - Nausea [None]

NARRATIVE: CASE EVENT DATE: 2014
